FAERS Safety Report 8997724 (Version 7)
Quarter: 2013Q2

REPORT INFORMATION
  Report Type: Spontaneous
  Country: US (occurrence: US)
  Receive Date: 20130104
  Receipt Date: 20130626
  Transmission Date: 20140414
  Serious: Yes (Hospitalization, Other)
  Sender: FDA-Public Use
  Company Number: US-009507513-1203USA00027

PATIENT
  Sex: Female

DRUGS (11)
  1. FOSAMAX [Suspect]
     Dosage: UNK
     Route: 048
     Dates: start: 200412, end: 200707
  2. FOSAMAX [Suspect]
     Dosage: 10 MG, QD
     Route: 048
     Dates: start: 19960112
  3. FOSAMAX [Suspect]
     Dosage: 70 MG, QW
     Route: 048
  4. FOSAMAX PLUS D [Suspect]
     Indication: OSTEOPOROSIS
     Dosage: 70 MG, QW
     Route: 048
     Dates: start: 200708, end: 200907
  5. PREDNISONE [Concomitant]
     Indication: RHEUMATOID ARTHRITIS
     Dosage: 2.5 MG, QD
     Route: 048
  6. METHOTREXATE [Concomitant]
     Indication: RHEUMATOID ARTHRITIS
     Dosage: 2.5 - 15 MG
     Route: 048
  7. LOTENSIN HCT [Concomitant]
     Indication: HYPERTENSION
     Dosage: 20/12.5 MG, QD
  8. BICILLIN [Concomitant]
     Dosage: 1.2 UNK, UNK
  9. ASPIRIN [Concomitant]
  10. CELEBREX [Concomitant]
     Indication: ARTHRITIS
  11. PREMPRO [Concomitant]
     Dosage: UNK
     Dates: start: 1980

REACTIONS (32)
  - Intramedullary rod insertion [Unknown]
  - Fall [Unknown]
  - Foot operation [Unknown]
  - Limb operation [Unknown]
  - Femur fracture [Recovered/Resolved]
  - Low turnover osteopathy [Unknown]
  - Depression [Unknown]
  - Anxiety [Unknown]
  - Gait disturbance [Unknown]
  - Stress fracture [Unknown]
  - Herpes zoster [Unknown]
  - Spinal osteoarthritis [Unknown]
  - Arthritis [Unknown]
  - Ilium fracture [Recovered/Resolved]
  - Menopausal symptoms [Unknown]
  - Inguinal hernia [Unknown]
  - Bone infarction [Unknown]
  - Haemorrhagic anaemia [Unknown]
  - Osteomyelitis chronic [Not Recovered/Not Resolved]
  - Laceration [Unknown]
  - Dysphonia [Unknown]
  - Hand fracture [Unknown]
  - Rheumatoid nodule [Unknown]
  - Limb injury [Unknown]
  - Upper respiratory tract infection [Unknown]
  - Spinal osteoarthritis [Unknown]
  - Osteoarthritis [Unknown]
  - Scoliosis [Unknown]
  - Rheumatoid nodule [Unknown]
  - Arthralgia [Recovered/Resolved]
  - Arthralgia [Unknown]
  - Pain in extremity [Unknown]
